FAERS Safety Report 18013976 (Version 2)
Quarter: 2020Q3

REPORT INFORMATION
  Report Type: Spontaneous
  Country: US (occurrence: US)
  Receive Date: 20200713
  Receipt Date: 20200929
  Transmission Date: 20201103
  Serious: Yes (Hospitalization)
  Sender: FDA-Public Use
  Company Number: US-LEXICON PHARMACEUTICALS, INC-20-1606-00554

PATIENT
  Age: 81 Year
  Sex: Female

DRUGS (2)
  1. XERMELO [Suspect]
     Active Substance: TELOTRISTAT ETHYL
     Indication: CARCINOID TUMOUR OF THE SMALL BOWEL
     Dates: start: 20181012
  2. XERMELO [Suspect]
     Active Substance: TELOTRISTAT ETHYL

REACTIONS (2)
  - Pneumonia [Unknown]
  - Septic shock [Unknown]

NARRATIVE: CASE EVENT DATE: 202006
